FAERS Safety Report 24254867 (Version 1)
Quarter: 2024Q3

REPORT INFORMATION
  Report Type: Spontaneous
  Country: US (occurrence: None)
  Receive Date: 20240826
  Receipt Date: 20240826
  Transmission Date: 20241016
  Serious: No
  Sender: Public
  Company Number: None

PATIENT
  Age: 70 Year
  Sex: Female
  Weight: 72 kg

DRUGS (16)
  1. RESTASIS [Suspect]
     Active Substance: CYCLOSPORINE
     Indication: Dry eye
     Dosage: 60 DROPS TWICE A DAY OPHTHALMIC
     Route: 047
     Dates: start: 20240802, end: 20240807
  2. XIIDRA [Suspect]
     Active Substance: LIFITEGRAST
     Indication: Dry eye
     Dosage: OTHER QUANTITY : 60 DROP(S)?FREQUENCY : TWICE A DAY?
     Route: 047
     Dates: start: 202408, end: 20240820
  3. LEVOTHYROXINE [Concomitant]
     Active Substance: LEVOTHYROXINE\LEVOTHYROXINE SODIUM
  4. Pantaprozole [Concomitant]
  5. AmbienCR [Concomitant]
  6. MIRTAZAPINE [Concomitant]
     Active Substance: MIRTAZAPINE
  7. BACLOFEN [Concomitant]
     Active Substance: BACLOFEN
  8. OYSTER SHELL CALCIUM [Concomitant]
  9. VITAMIN D3 [Concomitant]
  10. ALIGN [Concomitant]
     Active Substance: BIFIDOBACTERIUM LONGUM SUBSP. INFANTIS
  11. Senna [Concomitant]
  12. Echenechia [Concomitant]
  13. Vitamin C [Concomitant]
  14. Ginger Root [Concomitant]
  15. Turmeric [Concomitant]
  16. ELECTROLYTES NOS [Concomitant]
     Active Substance: ELECTROLYTES NOS

REACTIONS (3)
  - Ocular hyperaemia [None]
  - Ocular hyperaemia [None]
  - Glassy eyes [None]

NARRATIVE: CASE EVENT DATE: 20240806
